FAERS Safety Report 9444972 (Version 1)
Quarter: 2013Q3

REPORT INFORMATION
  Report Type: Spontaneous
  Country: PL (occurrence: PL)
  Receive Date: 20130729
  Receipt Date: 20130729
  Transmission Date: 20140515
  Serious: Yes (Other)
  Sender: FDA-Public Use
  Company Number: PL-IGSA-IGI422

PATIENT
  Age: 36 Year
  Sex: Female
  Weight: 76 kg

DRUGS (1)
  1. FLEBOGAMMA [Suspect]
     Indication: CONNECTIVE TISSUE DISORDER
     Route: 042
     Dates: start: 20130624, end: 20130624

REACTIONS (9)
  - Chills [None]
  - Cyanosis [None]
  - Tachypnoea [None]
  - Blood pressure increased [None]
  - Tachycardia [None]
  - General physical health deterioration [None]
  - Anxiety [None]
  - Heart rate increased [None]
  - Infusion related reaction [None]
